FAERS Safety Report 19768628 (Version 1)
Quarter: 2021Q3

REPORT INFORMATION
  Report Type: Spontaneous
  Country: US (occurrence: US)
  Receive Date: 20210830
  Receipt Date: 20210830
  Transmission Date: 20211014
  Serious: Yes (Other)
  Sender: FDA-Public Use
  Company Number: US-EMD SERONO-9261463

PATIENT
  Age: 62 Year
  Sex: Male
  Weight: 127 kg

DRUGS (8)
  1. CABOZANTINIB [Suspect]
     Active Substance: CABOZANTINIB
     Indication: METASTATIC RENAL CELL CARCINOMA
     Route: 048
     Dates: start: 20201014, end: 202103
  2. METFORMIN [Suspect]
     Active Substance: METFORMIN HYDROCHLORIDE
     Indication: PRODUCT USED FOR UNKNOWN INDICATION
  3. CABOZANTINIB [Suspect]
     Active Substance: CABOZANTINIB
     Dosage: DOSE NOT CHANGED
     Route: 048
     Dates: start: 202104
  4. NIVOLUMAB [Suspect]
     Active Substance: NIVOLUMAB
     Dosage: DRUG REINTRODUCED.
     Route: 042
     Dates: start: 202104
  5. METOPROLOL. [Suspect]
     Active Substance: METOPROLOL
     Indication: PRODUCT USED FOR UNKNOWN INDICATION
  6. ROSUVASTATIN. [Suspect]
     Active Substance: ROSUVASTATIN
     Indication: PRODUCT USED FOR UNKNOWN INDICATION
  7. NIVOLUMAB [Suspect]
     Active Substance: NIVOLUMAB
     Indication: METASTATIC RENAL CELL CARCINOMA
     Dosage: (BMS?936558, IVDX? 1106), DAY 1
     Route: 042
     Dates: start: 20201014, end: 20210316
  8. CABOZANTINIB [Suspect]
     Active Substance: CABOZANTINIB
     Route: 048
     Dates: start: 20210317, end: 20210413

REACTIONS (1)
  - Lipase increased [Recovered/Resolved]

NARRATIVE: CASE EVENT DATE: 20210421
